FAERS Safety Report 5226017-5 (Version None)
Quarter: 2007Q1

REPORT INFORMATION
  Report Type: 
  Country: None (occurrence: None)
  Receive Date: 20070129
  Receipt Date: 20070118
  Transmission Date: 20070707
  Serious: Yes (Other)
  Sender: FDA-Public Use
  Company Number: 235006

PATIENT
  Age: 16 Year
  Sex: Male
  Weight: 69.8 kg

DRUGS (5)
  1. NUTROPIN [Suspect]
     Indication: GROWTH HORMONE DEFICIENCY
     Dosage: 5 MG QD, SUBCUTANEOUS; 1 MG, QD, SUBCUTANEOUS
     Route: 058
     Dates: start: 20030601
  2. NUTROPIN [Suspect]
     Indication: GROWTH HORMONE DEFICIENCY
     Dosage: 5 MG QD, SUBCUTANEOUS; 1 MG, QD, SUBCUTANEOUS
     Route: 058
     Dates: start: 20070102
  3. NUTROPIN [Suspect]
     Indication: GROWTH HORMONE DEFICIENCY
     Dosage: 5 MG QD, SUBCUTANEOUS; 1 MG, QD, SUBCUTANEOUS
     Route: 058
     Dates: start: 20070111
  4. LISINOPRIL [Concomitant]
  5. TESTOSTERONE [Concomitant]

REACTIONS (4)
  - DEPRESSION [None]
  - DISTURBANCE IN ATTENTION [None]
  - FATIGUE [None]
  - HYPOTHYROIDISM [None]
